FAERS Safety Report 8992308 (Version 2)
Quarter: 2013Q2

REPORT INFORMATION
  Report Type: Spontaneous
  Country: US (occurrence: US)
  Receive Date: 20121231
  Receipt Date: 20130620
  Transmission Date: 20140414
  Serious: Yes (Hospitalization, Other)
  Sender: FDA-Public Use
  Company Number: US-BAYER-2012-134618

PATIENT
  Age: 71 Year
  Sex: Female
  Weight: 97.96 kg

DRUGS (12)
  1. BETASERON [Suspect]
     Indication: MULTIPLE SCLEROSIS
     Dosage: .25 MG, QOD
     Route: 058
     Dates: start: 20100629
  2. CALCIUM CARBONATE [Concomitant]
     Dosage: 1200 MG, QD
     Route: 048
  3. OMEGA-3 TRIGLYCERIDES [Concomitant]
     Dosage: 1 G, BID
     Route: 048
  4. LYRICA [Concomitant]
     Dosage: 100 MG, UNK
     Route: 048
  5. VALIUM [Concomitant]
     Dosage: 5 MG DAILY AS NEEDED
     Route: 048
  6. BACLOFEN [Concomitant]
     Dosage: 10 MG, TID AS NEEDED
     Route: 048
  7. LISINOPRIL [Concomitant]
     Dosage: 10 MG, QD
     Route: 048
  8. OMEPRAZOLE [Concomitant]
     Dosage: 20 MG, QD
     Route: 048
  9. OXYCODONE [Concomitant]
     Dosage: 5 MG. EVERY 6 HOURS AS NEEDED
     Route: 048
  10. TOLTERODINE [Concomitant]
     Dosage: 2 MG, BID
     Route: 048
  11. VENLAFAXINE [Concomitant]
     Dosage: 150 MG, QD
     Route: 048
  12. WARFARIN [Concomitant]
     Dosage: 5 MG, QD
     Route: 048

REACTIONS (6)
  - Angioplasty [None]
  - Catheter site cellulitis [None]
  - Multiple sclerosis relapse [None]
  - Diplegia [None]
  - Vascular occlusion [None]
  - Nerve injury [None]
